FAERS Safety Report 17940962 (Version 1)
Quarter: 2020Q2

REPORT INFORMATION
  Report Type: Spontaneous
  Country: US (occurrence: US)
  Receive Date: 20200624
  Receipt Date: 20200624
  Transmission Date: 20200714
  Serious: Yes (Hospitalization)
  Sender: FDA-Public Use
  Company Number: US-FOUNDATIONCONSUMERHC-2020-US-012511

PATIENT
  Age: 20 Month
  Sex: Male
  Weight: 87.09 kg

DRUGS (1)
  1. PLAN B ONE-STEP [Suspect]
     Active Substance: LEVONORGESTREL
     Indication: MATERNAL EXPOSURE BEFORE PREGNANCY
     Dosage: 1.5MG X 1 DOSE
     Route: 050
     Dates: start: 20180217, end: 20180217

REACTIONS (5)
  - Developmental delay [Unknown]
  - Speech disorder developmental [Unknown]
  - Premature baby [Unknown]
  - Maternal exposure before pregnancy [Recovered/Resolved]
  - Lung disorder [Recovered/Resolved]

NARRATIVE: CASE EVENT DATE: 20180217
